FAERS Safety Report 8410588-1 (Version None)
Quarter: 2012Q2

REPORT INFORMATION
  Report Type: 
  Country: None (occurrence: None)
  Receive Date: 20120605
  Receipt Date: 20120528
  Transmission Date: 20120825
  Serious: Yes (Other)
  Sender: FDA-Public Use
  Company Number: GB-JNJFOC-20120519836

PATIENT
  Age: 88 Year
  Sex: Female
  Weight: 68 kg

DRUGS (7)
  1. EPADERM [Concomitant]
     Dates: start: 20120221
  2. FUROSEMIDE [Concomitant]
     Dates: start: 20120210, end: 20120406
  3. QUININE SULFATE [Concomitant]
     Dates: start: 20120116, end: 20120312
  4. ACETAMINOPHEN [Suspect]
     Route: 065
  5. PREDNISOLONE [Concomitant]
     Dates: start: 20120210, end: 20120309
  6. ACETAMINOPHEN [Suspect]
     Indication: PRODUCT USED FOR UNKNOWN INDICATION
     Route: 065
     Dates: start: 20120517
  7. PREGABALIN [Concomitant]
     Dates: start: 20120210, end: 20120406

REACTIONS (4)
  - BACK PAIN [None]
  - RASH [None]
  - GROIN PAIN [None]
  - ORAL DISORDER [None]
